FAERS Safety Report 10222284 (Version 1)
Quarter: 2014Q2

REPORT INFORMATION
  Report Type: Spontaneous
  Country: PT (occurrence: PT)
  Receive Date: 20140606
  Receipt Date: 20140606
  Transmission Date: 20141212
  Serious: Yes (Hospitalization, Other)
  Sender: FDA-Public Use
  Company Number: PT-VIIV HEALTHCARE LIMITED-B1000911A

PATIENT
  Age: 36 Year
  Sex: Male

DRUGS (7)
  1. ZIDOVUDINE [Suspect]
     Indication: HIV INFECTION
     Route: 065
     Dates: start: 2007
  2. LAMIVUDINE-HIV [Suspect]
     Indication: HIV INFECTION
     Route: 065
     Dates: start: 2007
  3. EFAVIRENZ [Suspect]
     Indication: HIV INFECTION
     Route: 065
  4. ATAZANAVIR [Suspect]
     Indication: HIV INFECTION
     Route: 065
     Dates: start: 200806, end: 200903
  5. ZIDOVUDINE / LAMIVUDINE [Suspect]
     Indication: HIV INFECTION
     Route: 065
     Dates: start: 200806, end: 200903
  6. TENOFOVIR [Suspect]
     Indication: HIV INFECTION
     Route: 065
  7. EMTRICITABINE [Suspect]
     Indication: HIV INFECTION
     Route: 065

REACTIONS (14)
  - Immune reconstitution inflammatory syndrome [Recovered/Resolved]
  - Type 1 diabetes mellitus [Recovered/Resolved]
  - Basedow^s disease [Recovered/Resolved]
  - Neurotoxicity [Unknown]
  - Diabetic ketoacidosis [Unknown]
  - Weight decreased [Unknown]
  - Insomnia [Unknown]
  - Sinus tachycardia [Unknown]
  - Goitre [Unknown]
  - Physical examination abnormal [Unknown]
  - Thyroxine free increased [Unknown]
  - Tri-iodothyronine increased [Unknown]
  - Blood thyroid stimulating hormone decreased [Unknown]
  - Goitre [Unknown]
